FAERS Safety Report 18504034 (Version 1)
Quarter: 2020Q4

REPORT INFORMATION
  Report Type: Spontaneous
  Country: US (occurrence: US)
  Receive Date: 20201113
  Receipt Date: 20201113
  Transmission Date: 20210114
  Serious: No
  Sender: FDA-Public Use
  Company Number: US-NOVOPROD-698638

PATIENT
  Age: 48 Year
  Sex: Male
  Weight: 81.19 kg

DRUGS (1)
  1. FIASP [Suspect]
     Active Substance: INSULIN ASPART
     Indication: DIABETES MELLITUS
     Dosage: UNK
     Route: 058
     Dates: start: 20191119, end: 20191120

REACTIONS (2)
  - Product gel formation [Unknown]
  - Feeling abnormal [Not Recovered/Not Resolved]
